FAERS Safety Report 18948775 (Version 1)
Quarter: 2021Q1

REPORT INFORMATION
  Report Type: Spontaneous
  Country: US (occurrence: US)
  Receive Date: 20210226
  Receipt Date: 20210226
  Transmission Date: 20210420
  Serious: No
  Sender: FDA-Public Use
  Company Number: US-ROCHE-2375377

PATIENT
  Sex: Female

DRUGS (15)
  1. HYDROMORPHONE [Concomitant]
     Active Substance: HYDROMORPHONE
  2. ZOLPIDEM [Concomitant]
     Active Substance: ZOLPIDEM TARTRATE
  3. CEPHALEXIN. [Concomitant]
     Active Substance: CEPHALEXIN
  4. CYCLOBENZAPRINE. [Concomitant]
     Active Substance: CYCLOBENZAPRINE
  5. EMEND [Concomitant]
     Active Substance: APREPITANT
     Dosage: 80 +125
  6. PROMETHAZINE [Concomitant]
     Active Substance: PROMETHAZINE HYDROCHLORIDE
  7. HYDROXYZINE HCL [Concomitant]
     Active Substance: HYDROXYZINE HYDROCHLORIDE
  8. XOLAIR [Suspect]
     Active Substance: OMALIZUMAB
     Indication: IDIOPATHIC INTRACRANIAL HYPERTENSION
     Dosage: 150 MG VIAL
     Route: 058
  9. XARELTO [Concomitant]
     Active Substance: RIVAROXABAN
  10. RANITIDINE. [Concomitant]
     Active Substance: RANITIDINE
  11. ENOXAPARIN [Concomitant]
     Active Substance: ENOXAPARIN
     Dosage: 40/0.4 ML
  12. HYDROMORPHONE [Concomitant]
     Active Substance: HYDROMORPHONE
  13. OLANZAPINE. [Concomitant]
     Active Substance: OLANZAPINE
     Dosage: TAB 10MG ODT
  14. SYMBICORT [Concomitant]
     Active Substance: BUDESONIDE\FORMOTEROL FUMARATE DIHYDRATE
     Dosage: AER 160?4.5
  15. TEMAZEPAM. [Concomitant]
     Active Substance: TEMAZEPAM

REACTIONS (3)
  - No adverse event [Unknown]
  - Product use in unapproved indication [Unknown]
  - Off label use [Unknown]
